FAERS Safety Report 17442060 (Version 1)
Quarter: 2020Q1

REPORT INFORMATION
  Report Type: Spontaneous
  Country: DK (occurrence: DK)
  Receive Date: 20200220
  Receipt Date: 20200220
  Transmission Date: 20200409
  Serious: Yes (Other)
  Sender: FDA-Public Use
  Company Number: NVSC2020DK043934

PATIENT
  Age: 29 Year
  Sex: Female
  Weight: 100 kg

DRUGS (2)
  1. BIOCLAVID [Suspect]
     Active Substance: AMOXICILLIN\CLAVULANIC ACID
     Indication: OTITIS MEDIA
     Dosage: 3 DF, QD (STYRKE: 500 MG PLUS 125 MG)
     Route: 048
     Dates: start: 20191107
  2. NASONEX [Concomitant]
     Active Substance: MOMETASONE FUROATE
     Indication: RHINITIS ALLERGIC
     Dosage: 50 UG (STYRKE: 50 ?G/DOSIS, DOSIS: 2 PUST 2 GANGE DAGLIG BEM?RK: I HVERT N?SEBOR)
     Route: 045
     Dates: start: 20191028

REACTIONS (2)
  - Mucous stools [Recovered/Resolved]
  - Rectal haemorrhage [Recovered/Resolved]

NARRATIVE: CASE EVENT DATE: 20191110
